FAERS Safety Report 15717432 (Version 2)
Quarter: 2019Q1

REPORT INFORMATION
  Report Type: Report from Study
  Country: US (occurrence: US)
  Receive Date: 20181213
  Receipt Date: 20190107
  Transmission Date: 20190417
  Serious: Yes (Other)
  Sender: FDA-Public Use
  Company Number: US-SA-2016SA148501

PATIENT
  Age: 54 Year
  Sex: Female

DRUGS (3)
  1. ALEMTUZUMAB [Suspect]
     Active Substance: ALEMTUZUMAB
     Dosage: 12 MG,QD
     Route: 041
     Dates: start: 20170815, end: 20170817
  2. ALEMTUZUMAB [Suspect]
     Active Substance: ALEMTUZUMAB
     Indication: MULTIPLE SCLEROSIS
     Dosage: 12 MG,QD
     Route: 041
     Dates: start: 20160725, end: 20160729
  3. CORTICOTROPIN [Suspect]
     Active Substance: CORTICOTROPIN
     Dosage: UNK UNK,UNK
     Route: 065
     Dates: start: 201607

REACTIONS (74)
  - Ear discomfort [Recovered/Resolved]
  - Vertigo [Recovered/Resolved]
  - Upper-airway cough syndrome [Not Recovered/Not Resolved]
  - Infusion related reaction [Unknown]
  - Poor venous access [Not Recovered/Not Resolved]
  - Accident [Not Recovered/Not Resolved]
  - Joint swelling [Not Recovered/Not Resolved]
  - Rubber sensitivity [Not Recovered/Not Resolved]
  - Balance disorder [Not Recovered/Not Resolved]
  - Paraesthesia [Not Recovered/Not Resolved]
  - Gait disturbance [Recovered/Resolved]
  - Angular cheilitis [Recovered/Resolved]
  - Tooth discolouration [Not Recovered/Not Resolved]
  - Fungal skin infection [Recovering/Resolving]
  - Dyspnoea [Unknown]
  - Urine ketone body present [Not Recovered/Not Resolved]
  - Gastrooesophageal sphincter insufficiency [Not Recovered/Not Resolved]
  - Staphylococcal infection [Unknown]
  - Erythema [Not Recovered/Not Resolved]
  - Arthropod bite [Recovering/Resolving]
  - Pain [Not Recovered/Not Resolved]
  - Breast pain [Not Recovered/Not Resolved]
  - Rash [Not Recovered/Not Resolved]
  - Movement disorder [Not Recovered/Not Resolved]
  - Gait disturbance [Recovered/Resolved]
  - Muscle spasticity [Unknown]
  - Muscle spasms [Not Recovered/Not Resolved]
  - Stress [Not Recovered/Not Resolved]
  - Gastrointestinal disorder [Not Recovered/Not Resolved]
  - Eating disorder [Not Recovered/Not Resolved]
  - Anxiety [Not Recovered/Not Resolved]
  - Breast abscess [Recovering/Resolving]
  - Chills [Unknown]
  - Tinnitus [Not Recovered/Not Resolved]
  - Back pain [Not Recovered/Not Resolved]
  - CD4 lymphocytes decreased [Not Recovered/Not Resolved]
  - Red blood cell count decreased [Unknown]
  - Headache [Not Recovered/Not Resolved]
  - Blood pressure increased [Unknown]
  - Gastrooesophageal reflux disease [Not Recovered/Not Resolved]
  - Urine analysis abnormal [Not Recovered/Not Resolved]
  - Contusion [Recovered/Resolved]
  - Tremor [Unknown]
  - Immune system disorder [Unknown]
  - Headache [Unknown]
  - Tremor [Recovered/Resolved]
  - Micturition urgency [Not Recovered/Not Resolved]
  - Muscular weakness [Not Recovered/Not Resolved]
  - Candida infection [Recovered/Resolved]
  - Rash [Recovered/Resolved]
  - Pain in extremity [Recovered/Resolved]
  - Hiatus hernia [Not Recovered/Not Resolved]
  - Malaise [Not Recovered/Not Resolved]
  - Pruritus [Unknown]
  - Aphonia [Not Recovered/Not Resolved]
  - Abscess [Unknown]
  - Skin lesion [Recovering/Resolving]
  - Dysphagia [Not Recovered/Not Resolved]
  - Dizziness [Unknown]
  - Thyroid function test abnormal [Not Recovered/Not Resolved]
  - Lymphocyte count decreased [Not Recovered/Not Resolved]
  - Fatigue [Not Recovered/Not Resolved]
  - Folliculitis [Not Recovered/Not Resolved]
  - Musculoskeletal chest pain [Not Recovered/Not Resolved]
  - Venipuncture [Not Recovered/Not Resolved]
  - Cognitive disorder [Unknown]
  - Back injury [Recovered/Resolved]
  - Nausea [Not Recovered/Not Resolved]
  - Cough [Unknown]
  - Breast mass [Unknown]
  - Asthenia [Recovering/Resolving]
  - Dry eye [Not Recovered/Not Resolved]
  - Dyspepsia [Not Recovered/Not Resolved]
  - Pain in extremity [Not Recovered/Not Resolved]

NARRATIVE: CASE EVENT DATE: 2016
